FAERS Safety Report 21915661 (Version 2)
Quarter: 2023Q1

REPORT INFORMATION
  Report Type: Spontaneous
  Country: HN (occurrence: HN)
  Receive Date: 20230126
  Receipt Date: 20230216
  Transmission Date: 20230418
  Serious: No
  Sender: FDA-Public Use
  Company Number: HN-PFIZER INC-PV202200125275

PATIENT
  Age: 12 Year
  Sex: Male

DRUGS (1)
  1. GENOTROPIN [Suspect]
     Active Substance: SOMATROPIN
     Dosage: 1.2 MG, 1X/DAY
     Dates: start: 20220627

REACTIONS (3)
  - Wrong technique in device usage process [Unknown]
  - Injection site pain [Unknown]
  - Injection site bruising [Unknown]
